FAERS Safety Report 11150420 (Version 1)
Quarter: 2015Q2

REPORT INFORMATION
  Report Type: Report from Study
  Country: GR (occurrence: GR)
  Receive Date: 20150531
  Receipt Date: 20150531
  Transmission Date: 20150821
  Serious: Yes (Death)
  Sender: FDA-Public Use
  Company Number: GR-SA-BMS17442690

PATIENT
  Age: 72 Year
  Sex: Female

DRUGS (5)
  1. LITHIUM. [Interacting]
     Active Substance: LITHIUM
  2. IRBESARTAN. [Suspect]
     Active Substance: IRBESARTAN
  3. BUSPIRONE [Interacting]
     Active Substance: BUSPIRONE HYDROCHLORIDE
  4. AMLODIPINE [Interacting]
     Active Substance: AMLODIPINE BESYLATE
  5. ESCITALOPRAM [Interacting]
     Active Substance: ESCITALOPRAM OXALATE

REACTIONS (2)
  - Neuroleptic malignant syndrome [Fatal]
  - Drug interaction [Fatal]
